FAERS Safety Report 10712735 (Version 1)
Quarter: 2015Q1

REPORT INFORMATION
  Report Type: Spontaneous
  Country: US (occurrence: None)
  Receive Date: 20150114
  Receipt Date: 20150114
  Transmission Date: 20150721
  Serious: Yes (Death)
  Sender: FDA-Public Use
  Company Number: None

PATIENT
  Age: 61 Year
  Sex: Male

DRUGS (1)
  1. NEXAVAR [Suspect]
     Active Substance: SORAFENIB
     Indication: NEOPLASM
     Route: 048
     Dates: start: 201405, end: 20150105

REACTIONS (1)
  - Death [None]

NARRATIVE: CASE EVENT DATE: 20150105
